FAERS Safety Report 7570545-4 (Version None)
Quarter: 2011Q2

REPORT INFORMATION
  Report Type: 
  Country: None (occurrence: None)
  Receive Date: 20110624
  Receipt Date: 20110405
  Transmission Date: 20111010
  Serious: No
  Sender: FDA-Public Use
  Company Number: US-ALLERGAN-1104746US

PATIENT
  Age: 53 Year
  Sex: Female

DRUGS (2)
  1. LATISSE [Suspect]
  2. LATISSE [Suspect]
     Indication: GROWTH OF EYELASHES
     Dosage: 1 GTT, UNKNOWN
     Route: 061

REACTIONS (3)
  - PRURITUS [None]
  - INAPPROPRIATE SCHEDULE OF DRUG ADMINISTRATION [None]
  - ERYTHEMA [None]
